FAERS Safety Report 4941778-8 (Version None)
Quarter: 2006Q1

REPORT INFORMATION
  Report Type: 
  Country: None (occurrence: None)
  Receive Date: 20060308
  Receipt Date: 20060225
  Transmission Date: 20060701
  Serious: Yes (Hospitalization)
  Sender: FDA-Public Use
  Company Number: 2006026882

PATIENT
  Age: 32 Year
  Sex: Male
  Weight: 88.4514 kg

DRUGS (1)
  1. ROGAINE [Suspect]
     Dosage: 1 ML TWICE DAILY, TOPICAL
     Route: 061
     Dates: start: 20050601

REACTIONS (2)
  - DIZZINESS [None]
  - SYNCOPE [None]
